FAERS Safety Report 4788956-9 (Version None)
Quarter: 2005Q4

REPORT INFORMATION
  Report Type: 
  Country: None (occurrence: None)
  Receive Date: 20051004
  Receipt Date: 20050920
  Transmission Date: 20060501
  Serious: Yes (Other)
  Sender: FDA-Public Use
  Company Number: 2005-132669-NL

PATIENT
  Age: 28 Year
  Sex: Female
  Weight: 108.9 kg

DRUGS (4)
  1. NUVARING [Suspect]
     Indication: CONTRACEPTION
     Dosage: VAGINAL
     Route: 067
     Dates: start: 20050711
  2. NUVARING [Suspect]
     Indication: HORMONE LEVEL ABNORMAL
     Dosage: VAGINAL
     Route: 067
     Dates: start: 20050711
  3. NUVARING [Suspect]
     Indication: MENSTRUATION IRREGULAR
     Dosage: VAGINAL
     Route: 067
     Dates: start: 20050711
  4. LUNELLE [Concomitant]

REACTIONS (6)
  - ABDOMINAL PAIN [None]
  - DIARRHOEA HAEMORRHAGIC [None]
  - DYSMENORRHOEA [None]
  - MENORRHAGIA [None]
  - METRORRHAGIA [None]
  - PYREXIA [None]
